FAERS Safety Report 17843311 (Version 2)
Quarter: 2020Q2

REPORT INFORMATION
  Report Type: Spontaneous
  Country: FR (occurrence: FR)
  Receive Date: 20200530
  Receipt Date: 20200604
  Transmission Date: 20200714
  Serious: Yes (Hospitalization)
  Sender: FDA-Public Use
  Company Number: NVSC2020FR148319

PATIENT
  Age: 59 Year
  Sex: Male
  Weight: 106.5 kg

DRUGS (4)
  1. TERCIAN [Concomitant]
     Active Substance: CYAMEMAZINE
     Indication: INTENTIONAL OVERDOSE
     Dosage: 2250 MG, 1 TOTAL
     Route: 048
     Dates: start: 20200218, end: 20200218
  2. FLUOXETINE [Concomitant]
     Active Substance: FLUOXETINE HYDROCHLORIDE
     Indication: INTENTIONAL OVERDOSE
     Dosage: 30 DF, 1 TOTAL
     Route: 048
     Dates: start: 20200218, end: 20200218
  3. CHIBRO-PROSCAR [Concomitant]
     Active Substance: FINASTERIDE
     Indication: INTENTIONAL OVERDOSE
     Dosage: 20 DF, TOTAL
     Route: 048
     Dates: start: 20200218, end: 20200218
  4. PARACETAMOL [Suspect]
     Active Substance: ACETAMINOPHEN
     Indication: INTENTIONAL OVERDOSE
     Dosage: UNK (NP)
     Route: 048
     Dates: start: 20200218, end: 20200218

REACTIONS (4)
  - Miosis [Recovered/Resolved]
  - Poisoning deliberate [Recovered/Resolved]
  - Hepatocellular injury [Recovered/Resolved]
  - Depressed level of consciousness [Recovered/Resolved]

NARRATIVE: CASE EVENT DATE: 20200218
